FAERS Safety Report 4909127-9 (Version None)
Quarter: 2006Q1

REPORT INFORMATION
  Report Type: 
  Country: None (occurrence: None)
  Receive Date: 20060208
  Receipt Date: 20060127
  Transmission Date: 20060701
  Serious: Yes (Other)
  Sender: FDA-Public Use
  Company Number: SUS1-2006-00098

PATIENT
  Age: 49 Year
  Sex: Female
  Weight: 54.4 kg

DRUGS (1)
  1. ADDERALL 10 [Suspect]
     Indication: ATTENTION DEFICIT/HYPERACTIVITY DISORDER
     Dosage: 30 MG, 2X/DAY:BID
     Dates: start: 20051001

REACTIONS (2)
  - LYMPHADENOPATHY [None]
  - PRESCRIBED OVERDOSE [None]
